FAERS Safety Report 6016928-5 (Version None)
Quarter: 2008Q4

REPORT INFORMATION
  Report Type: 
  Country: None (occurrence: None)
  Receive Date: 20081218
  Receipt Date: 20081211
  Transmission Date: 20090506
  Serious: Yes (Death, Hospitalization)
  Sender: FDA-Public Use
  Company Number: 2008US003213

PATIENT
  Age: 52 Year
  Sex: Male
  Weight: 77 kg

DRUGS (15)
  1. PROGRAF [Suspect]
     Indication: BONE MARROW TRANSPLANT
     Dosage: 1 MG, BID, IV NOS
     Route: 042
     Dates: start: 20080429, end: 20080714
  2. ACTIGALL [Concomitant]
  3. AUGMENTIN (AMOXICILLIN TRIHYDRATE) [Concomitant]
  4. BACTRIM DS [Concomitant]
  5. DIFLUCAN [Concomitant]
  6. DILAUDID [Concomitant]
  7. FOLIC ACID [Concomitant]
  8. IMODIUM (SIMETICONE) [Concomitant]
  9. LEVAQUIN [Concomitant]
  10. MAGNESIUM OXIDE (MAGNESIUM OXIDE) [Concomitant]
  11. MULTIVITAMIN (SELENIUM, IODINE, ZINC, COPPER, CHROMIUM, MANGANESE, MAG [Concomitant]
  12. PHENERGAN HCL [Concomitant]
  13. PREVACID [Concomitant]
  14. SENOKOT (SENNA ALEXANDRINA) [Concomitant]
  15. VALTREX [Concomitant]

REACTIONS (11)
  - BACK PAIN [None]
  - BLOOD PRESSURE DECREASED [None]
  - DYSPNOEA [None]
  - FEBRILE NEUTROPENIA [None]
  - HAEMATURIA [None]
  - HAEMOPTYSIS [None]
  - LEUKAEMIA RECURRENT [None]
  - OROPHARYNGEAL PAIN [None]
  - PAIN [None]
  - PNEUMONIA FUNGAL [None]
  - RESPIRATORY DISORDER [None]
